FAERS Safety Report 4742824-7 (Version None)
Quarter: 2005Q3

REPORT INFORMATION
  Report Type: 
  Country: None (occurrence: None)
  Receive Date: 20050811
  Receipt Date: 20050713
  Transmission Date: 20060218
  Serious: Yes (Hospitalization)
  Sender: FDA-Public Use
  Company Number: JP-GLAXOSMITHKLINE-B0387610A

PATIENT
  Age: 37 Year
  Sex: Male
  Weight: 80 kg

DRUGS (5)
  1. VALTREX [Suspect]
     Indication: HERPES VIRUS INFECTION
     Dosage: 1000MG THREE TIMES PER DAY
     Route: 048
     Dates: start: 20050705, end: 20050709
  2. RIZABEN [Suspect]
     Indication: INTERVERTEBRAL DISC PROTRUSION
     Dosage: 100MG THREE TIMES PER DAY
     Route: 048
     Dates: start: 20050622, end: 20050709
  3. TRANSAMIN [Concomitant]
     Indication: HERPES VIRUS INFECTION
     Dosage: 750MG PER DAY
     Route: 048
     Dates: start: 20050705, end: 20050709
  4. CYANOCOBALAMIN [Concomitant]
     Indication: INTERVERTEBRAL DISC PROTRUSION
     Dosage: 1500MCG PER DAY
     Route: 048
     Dates: start: 20050622, end: 20050709
  5. VALTREX [Concomitant]
     Indication: HERPES ZOSTER
     Route: 048
     Dates: start: 20050501

REACTIONS (5)
  - ALANINE AMINOTRANSFERASE INCREASED [None]
  - ASPARTATE AMINOTRANSFERASE INCREASED [None]
  - BLOOD BILIRUBIN INCREASED [None]
  - HEPATIC FUNCTION ABNORMAL [None]
  - JAUNDICE [None]
